FAERS Safety Report 25509491 (Version 2)
Quarter: 2025Q3

REPORT INFORMATION
  Report Type: Report from Study
  Country: EU (occurrence: EU)
  Receive Date: 20250703
  Receipt Date: 20250923
  Transmission Date: 20251020
  Serious: Yes (Congenital Anomaly)
  Sender: HETERO
  Company Number: EU-AMAROX PHARMA-AMR2025DE03488

PATIENT
  Sex: Female
  Weight: 1.924 kg

DRUGS (5)
  1. TENOFOVIR [Suspect]
     Active Substance: TENOFOVIR
     Indication: Product used for unknown indication
     Route: 064
     Dates: start: 20241107
  2. TENOFOVIR ALAFENAMIDE [Suspect]
     Active Substance: TENOFOVIR ALAFENAMIDE
     Indication: Product used for unknown indication
     Route: 064
     Dates: start: 20241016, end: 20241107
  3. DOVATO [Suspect]
     Active Substance: DOLUTEGRAVIR SODIUM\LAMIVUDINE
     Indication: Product used for unknown indication
     Route: 064
     Dates: start: 20241014
  4. METHYLDOPA [Suspect]
     Active Substance: METHYLDOPA
     Indication: Product used for unknown indication
     Route: 064
  5. NIFEDIPINE [Suspect]
     Active Substance: NIFEDIPINE
     Indication: Product used for unknown indication
     Route: 064

REACTIONS (2)
  - Renal hypoplasia [Unknown]
  - Foetal exposure during pregnancy [Unknown]
